FAERS Safety Report 12197727 (Version 1)
Quarter: 2016Q1

REPORT INFORMATION
  Report Type: Spontaneous
  Country: US (occurrence: None)
  Receive Date: 20160321
  Receipt Date: 20160321
  Transmission Date: 20160526
  Serious: Yes (Life-Threatening, Hospitalization)
  Sender: FDA-Public Use
  Company Number: None

PATIENT
  Age: 61 Year
  Sex: Female
  Weight: 63.5 kg

DRUGS (1)
  1. ZOLPIDEM [Suspect]
     Active Substance: ZOLPIDEM\ZOLPIDEM TARTRATE
     Indication: INSOMNIA
     Route: 048
     Dates: start: 20150311, end: 20150812

REACTIONS (10)
  - Craniocerebral injury [None]
  - Pelvic fracture [None]
  - Injury [None]
  - Impaired work ability [None]
  - Fall [None]
  - Somnambulism [None]
  - Hip fracture [None]
  - Wrist fracture [None]
  - Deformity [None]
  - Facial bones fracture [None]

NARRATIVE: CASE EVENT DATE: 20140814
